FAERS Safety Report 20995809 (Version 1)
Quarter: 2022Q2

REPORT INFORMATION
  Report Type: Spontaneous
  Country: JP (occurrence: JP)
  Receive Date: 20220623
  Receipt Date: 20220623
  Transmission Date: 20220721
  Serious: Yes (Other)
  Sender: FDA-Public Use
  Company Number: JP-SAKK-01150994

PATIENT
  Sex: Male

DRUGS (1)
  1. DUPIXENT [Suspect]
     Active Substance: DUPILUMAB
     Indication: Dermatitis atopic
     Dosage: UNK
     Route: 058
     Dates: start: 2021

REACTIONS (4)
  - Parkinson^s disease [Unknown]
  - Hypotension [Unknown]
  - Abdominal pain [Unknown]
  - Rectal tenesmus [Recovered/Resolved]
